FAERS Safety Report 24319161 (Version 1)
Quarter: 2024Q3

REPORT INFORMATION
  Report Type: Spontaneous
  Country: US (occurrence: US)
  Receive Date: 20240913
  Receipt Date: 20240913
  Transmission Date: 20241017
  Serious: No
  Sender: INSUD PHARMA
  Company Number: US-INSUD PHARMA-2408US06872

PATIENT

DRUGS (1)
  1. SLYND [Suspect]
     Active Substance: DROSPIRENONE
     Indication: Product used for unknown indication
     Dosage: UNK
     Route: 048
     Dates: start: 202405

REACTIONS (1)
  - Intermenstrual bleeding [Not Recovered/Not Resolved]

NARRATIVE: CASE EVENT DATE: 20240801
